FAERS Safety Report 10687653 (Version 2)
Quarter: 2015Q1

REPORT INFORMATION
  Report Type: Spontaneous
  Country: CN (occurrence: None)
  Receive Date: 20141230
  Receipt Date: 20150122
  Transmission Date: 20150720
  Serious: Yes (Other)
  Sender: FDA-Public Use
  Company Number: 2014SEB00071

PATIENT
  Age: 54 Year
  Sex: Female
  Weight: 60 kg

DRUGS (4)
  1. UNSPECIFIED PAIN KILLERS [Concomitant]
     Active Substance: UNSPECIFIED INGREDIENT
  2. CALCIUM SUPPLEMENT [Concomitant]
     Active Substance: CALCIUM
  3. CALCITONIN-SALMON [Suspect]
     Active Substance: CALCITONIN SALMON
     Indication: OSTEOPOROSIS
     Route: 030
  4. TRIPTERYGIUM GLYCOSIDES [Concomitant]

REACTIONS (4)
  - Drug hypersensitivity [None]
  - Sinus arrhythmia [None]
  - Vision blurred [None]
  - Ventricular extrasystoles [None]

NARRATIVE: CASE EVENT DATE: 20110207
